FAERS Safety Report 6175391-4 (Version None)
Quarter: 2009Q2

REPORT INFORMATION
  Report Type: 
  Country: None (occurrence: None)
  Receive Date: 20090430
  Receipt Date: 20080912
  Transmission Date: 20091009
  Serious: No
  Sender: FDA-Public Use
  Company Number: US-ASTRAZENECA-2008UW18952

PATIENT
  Sex: Male

DRUGS (5)
  1. NEXIUM [Suspect]
     Indication: GASTROINTESTINAL HAEMORRHAGE
     Dosage: 8 MG/HOUR
     Route: 042
  2. MORPHINE [Concomitant]
  3. ONDANSETRON [Concomitant]
  4. DOPAMINE TITRATION [Concomitant]
     Dosage: TITRATION
  5. LEVOFLOXACIN [Concomitant]

REACTIONS (2)
  - ADMINISTRATION SITE PAIN [None]
  - ADMINISTRATION SITE REACTION [None]
